FAERS Safety Report 7564865-7 (Version None)
Quarter: 2011Q2

REPORT INFORMATION
  Report Type: 
  Country: None (occurrence: None)
  Receive Date: 20110622
  Receipt Date: 20110214
  Transmission Date: 20111010
  Serious: Yes (Other)
  Sender: FDA-Public Use
  Company Number: US-MYLANLABS-2011S1001135

PATIENT
  Age: 30 Year
  Sex: Female

DRUGS (10)
  1. PROPRANOLOL [Concomitant]
     Dates: start: 20100105
  2. ZYPREXA [Concomitant]
     Route: 030
     Dates: start: 20110103
  3. ZYPREXA ZYDIS [Concomitant]
     Dates: start: 20110103
  4. HALDOL [Concomitant]
     Dates: start: 20110101
  5. BENZTROPINE MESYLATE [Concomitant]
  6. CLOZAPINE [Suspect]
     Route: 048
     Dates: end: 20110110
  7. ATIVAN [Concomitant]
     Dates: start: 20110101
  8. CLOZAPINE [Suspect]
     Indication: SCHIZOPHRENIA, PARANOID TYPE
     Route: 048
     Dates: start: 20110103
  9. FLUPHENAZINE [Concomitant]
     Dates: start: 20110103
  10. BENZTROPINE MESYLATE [Concomitant]

REACTIONS (1)
  - GRANULOCYTOPENIA [None]
